FAERS Safety Report 10846457 (Version 1)
Quarter: 2015Q1

REPORT INFORMATION
  Report Type: Spontaneous
  Country: RU (occurrence: RU)
  Receive Date: 20150220
  Receipt Date: 20150220
  Transmission Date: 20150721
  Serious: Yes (Death)
  Sender: FDA-Public Use
  Company Number: PHHY2015RU013459

PATIENT
  Sex: Male

DRUGS (2)
  1. AFINITOR [Suspect]
     Active Substance: EVEROLIMUS
     Indication: RENAL CELL CARCINOMA
     Dosage: 10 MG, QD
     Route: 048
     Dates: start: 200905, end: 201201
  2. SUNITINIB [Concomitant]
     Active Substance: SUNITINIB
     Indication: PRODUCT USED FOR UNKNOWN INDICATION
     Route: 065
     Dates: start: 201204, end: 201303

REACTIONS (10)
  - Malignant neoplasm progression [Unknown]
  - Hypertriglyceridaemia [Unknown]
  - Diarrhoea [Unknown]
  - Asthenia [Unknown]
  - Stomatitis [Unknown]
  - Cough [Unknown]
  - Pneumonitis [Unknown]
  - Cerebrovascular accident [Fatal]
  - Hypercholesterolaemia [Unknown]
  - Fatigue [Unknown]
